FAERS Safety Report 9238326 (Version 1)
Quarter: 2013Q2

REPORT INFORMATION
  Report Type: Spontaneous
  Country: FR (occurrence: None)
  Receive Date: 20130416
  Receipt Date: 20130416
  Transmission Date: 20140414
  Serious: Yes (Hospitalization)
  Sender: FDA-Public Use
  Company Number: 1669727

PATIENT
  Age: 60 Year
  Sex: Male

DRUGS (4)
  1. (OXALIPLATIN) [Suspect]
     Indication: PANCREATIC CARCINOMA
     Dosage: 145 MG MILLIGRAM (S) ( 1 WEEK ) INTRAVENOUS (NOT OTHERWISE SPECIFIED)
     Route: 042
     Dates: start: 20120727, end: 20121113
  2. (CORTICOSTEROIDS) [Concomitant]
  3. (ZOPHREN /00955301/) [Concomitant]
  4. (FOLFIRI) [Concomitant]

REACTIONS (4)
  - Malaise [None]
  - Dizziness [None]
  - Chest pain [None]
  - Hypotension [None]
